FAERS Safety Report 8887145 (Version 2)
Quarter: 2012Q4

REPORT INFORMATION
  Report Type: Report from Study
  Country: JP (occurrence: JP)
  Receive Date: 20121105
  Receipt Date: 20121113
  Transmission Date: 20130627
  Serious: Yes (Hospitalization)
  Sender: FDA-Public Use
  Company Number: JP-ROCHE-1149613

PATIENT
  Age: 71 Year
  Sex: Male
  Weight: 47.9 kg

DRUGS (10)
  1. CAPECITABINE [Suspect]
     Indication: GASTRIC CANCER
     Route: 048
     Dates: start: 20120830
  2. OXALIPLATIN [Suspect]
     Indication: GASTRIC CANCER
     Route: 042
     Dates: start: 20120830
  3. COVERSYL [Concomitant]
     Indication: HYPERTENSION
     Route: 048
     Dates: start: 2007
  4. NORVASC [Concomitant]
     Indication: HYPERTENSION
     Route: 048
     Dates: start: 2007
  5. BUSCOPAN [Concomitant]
     Route: 030
     Dates: start: 20121024, end: 20121024
  6. SEFMAZON [Concomitant]
     Route: 042
     Dates: start: 20121024, end: 20121029
  7. OMEPRAL [Concomitant]
     Route: 042
     Dates: start: 20121024, end: 20121031
  8. INTRALIPOS [Concomitant]
     Route: 042
     Dates: start: 20121025, end: 20121030
  9. BFLUID [Concomitant]
     Route: 042
     Dates: start: 20121025, end: 20121030
  10. SOLULACT [Concomitant]
     Dosage: Drug reported as : Solulact D
     Route: 042
     Dates: start: 20121025, end: 20121031

REACTIONS (1)
  - Anastomotic complication [Recovered/Resolved]
